FAERS Safety Report 6968883-9 (Version None)
Quarter: 2010Q3

REPORT INFORMATION
  Report Type: 
  Country: None (occurrence: None)
  Receive Date: 20100907
  Receipt Date: 20100827
  Transmission Date: 20110219
  Serious: Yes (Other)
  Sender: FDA-Public Use
  Company Number: BR-PFIZER INC-2010108266

PATIENT
  Age: 63 Year
  Sex: Female
  Weight: 69 kg

DRUGS (7)
  1. CHAMPIX [Suspect]
     Indication: TOBACCO USER
     Dosage: UNK
     Route: 048
  2. CHAMPIX [Suspect]
     Dosage: 1 MG, 2X/DAY, EVERY 12 HOURS
     Route: 048
     Dates: start: 20100801
  3. LEVOFLOXACIN [Concomitant]
     Dosage: UNK
  4. PRELONE [Concomitant]
     Dosage: UNK
  5. FLUTICASONE FUROATE [Concomitant]
     Dosage: UNK (27.5 MG) SPRAY
  6. METRONIDAZOLE [Concomitant]
     Dosage: UNK
  7. SODIUM CHLORIDE [Concomitant]
     Dosage: UNK

REACTIONS (2)
  - FLUID RETENTION [None]
  - SWELLING FACE [None]
